FAERS Safety Report 7603357-3 (Version None)
Quarter: 2011Q3

REPORT INFORMATION
  Report Type: 
  Country: None (occurrence: None)
  Receive Date: 20110712
  Receipt Date: 20110702
  Transmission Date: 20111222
  Serious: Yes (Other)
  Sender: FDA-Public Use
  Company Number: PHHY2010US61940

PATIENT
  Sex: Male
  Weight: 104 kg

DRUGS (12)
  1. METFORMIN HCL [Concomitant]
  2. TASIGNA [Suspect]
     Indication: NEOPLASM MALIGNANT
     Dosage: 400 MG, BID
     Route: 048
     Dates: start: 20100825
  3. LASIX [Concomitant]
  4. DOCUSATE SODIUM [Concomitant]
  5. VYTORIN [Concomitant]
  6. VYTORIN [Concomitant]
  7. GLUCOPHAGE [Concomitant]
  8. FENOFIBRATE [Concomitant]
  9. FERROUS SULFATE TAB [Concomitant]
  10. WARFARIN SODIUM [Concomitant]
  11. NOVOLIN 70/30 [Concomitant]
  12. POTASSIUM [Concomitant]

REACTIONS (2)
  - BLOOD GLUCOSE DECREASED [None]
  - LABELLED DRUG-FOOD INTERACTION MEDICATION ERROR [None]
